FAERS Safety Report 17770930 (Version 2)
Quarter: 2022Q4

REPORT INFORMATION
  Report Type: Report from Study
  Country: CO (occurrence: CO)
  Receive Date: 20200512
  Receipt Date: 20221102
  Transmission Date: 20230113
  Serious: Yes (Death, Hospitalization)
  Sender: FDA-Public Use
  Company Number: CO-NOVARTISPH-NVSC2019CO090991

PATIENT
  Sex: Female

DRUGS (2)
  1. JADENU [Suspect]
     Active Substance: DEFERASIROX
     Indication: Systemic lupus erythematosus
     Dosage: 2 DF, OT
     Route: 065
  2. JADENU [Suspect]
     Active Substance: DEFERASIROX
     Indication: Blood iron increased

REACTIONS (2)
  - Death [Fatal]
  - Paralysis [Unknown]
